FAERS Safety Report 10153827 (Version 4)
Quarter: 2014Q4

REPORT INFORMATION
  Report Type: Spontaneous
  Country: DE (occurrence: DE)
  Receive Date: 20140506
  Receipt Date: 20141223
  Transmission Date: 20150528
  Serious: Yes (Other)
  Sender: FDA-Public Use
  Company Number: DE-ABBVIE-14P-062-1233216-00

PATIENT
  Age: 76 Year
  Sex: Male

DRUGS (1)
  1. TRENANTONE [Suspect]
     Active Substance: LEUPROLIDE ACETATE
     Indication: PROSTATE CANCER
     Route: 058
     Dates: start: 20111102, end: 20130404

REACTIONS (4)
  - Pathological fracture [Unknown]
  - Metastases to bone [Unknown]
  - Prostatic specific antigen increased [Unknown]
  - Renal cancer recurrent [Unknown]

NARRATIVE: CASE EVENT DATE: 2013
